FAERS Safety Report 7112893-8 (Version None)
Quarter: 2010Q4

REPORT INFORMATION
  Report Type: 
  Country: None (occurrence: None)
  Receive Date: 20101119
  Receipt Date: 20100521
  Transmission Date: 20110411
  Serious: No
  Sender: FDA-Public Use
  Company Number: US-BRISTOL-MYERS SQUIBB COMPANY-15076243

PATIENT
  Age: 74 Year
  Sex: Female
  Weight: 86 kg

DRUGS (2)
  1. AVALIDE [Suspect]
     Indication: HYPERTENSION
     Dosage: 1 DOSAGE FORM IS EQUAL TO 300/12.5 MG.
  2. ATENOLOL [Concomitant]
     Indication: HYPERTENSION

REACTIONS (3)
  - DYSPHONIA [None]
  - PALPITATIONS [None]
  - TREMOR [None]
